FAERS Safety Report 7678165-8 (Version None)
Quarter: 2011Q3

REPORT INFORMATION
  Report Type: 
  Country: None (occurrence: None)
  Receive Date: 20110811
  Receipt Date: 20110803
  Transmission Date: 20111222
  Serious: Yes (Disabling)
  Sender: FDA-Public Use
  Company Number: US-MPIJNJ-2011-03085

PATIENT
  Sex: Male

DRUGS (1)
  1. VELCADE [Suspect]
     Indication: MULTIPLE MYELOMA
     Dosage: 1 MG, 1/WEEK
     Route: 042
     Dates: start: 20101123, end: 20110412

REACTIONS (2)
  - PAPILLOEDEMA [None]
  - OPTIC ISCHAEMIC NEUROPATHY [None]
